FAERS Safety Report 6689702-4 (Version None)
Quarter: 2010Q2

REPORT INFORMATION
  Report Type: 
  Country: None (occurrence: None)
  Receive Date: 20100421
  Receipt Date: 20100413
  Transmission Date: 20101027
  Serious: Yes (Hospitalization, Other)
  Sender: FDA-Public Use
  Company Number: US-TEVA-231220USA

PATIENT

DRUGS (2)
  1. PHENTERMINE HYDROCHLORIDE 37.5 MG [Suspect]
     Indication: WEIGHT INCREASED
  2. ARIPIPRAZOLE [Suspect]

REACTIONS (1)
  - PANCREATITIS [None]
